FAERS Safety Report 5227055-9 (Version None)
Quarter: 2007Q1

REPORT INFORMATION
  Report Type: 
  Country: None (occurrence: None)
  Receive Date: 20070201
  Receipt Date: 20070201
  Transmission Date: 20070707
  Serious: Yes (Other)
  Sender: FDA-Public Use
  Company Number: None

PATIENT
  Age: 65 Year
  Sex: Female
  Weight: 75 kg

DRUGS (2)
  1. GADOLINIUM FOR MR CONTRAST [Suspect]
     Indication: DIAGNOSTIC PROCEDURE
     Dates: start: 20060526, end: 20060527
  2. GADOLINIUM FOR MR CONTRAST [Suspect]
     Indication: DIAGNOSTIC PROCEDURE
     Dates: start: 20060530, end: 20060531

REACTIONS (1)
  - NEPHROGENIC FIBROSING DERMOPATHY [None]
